FAERS Safety Report 8827259 (Version 3)
Quarter: 2014Q1

REPORT INFORMATION
  Report Type: Report from Study
  Country: BE (occurrence: BE)
  Receive Date: 20121005
  Receipt Date: 20140304
  Transmission Date: 20141002
  Serious: Yes (Hospitalization)
  Sender: FDA-Public Use
  Company Number: BE-ROCHE-1134338

PATIENT
  Age: 51 Year
  Sex: Female
  Weight: 71 kg

DRUGS (16)
  1. RITUXIMAB [Suspect]
     Indication: LYMPHOMA
     Dosage: LAST VOLUME TAKEN: 1000 ML, DOSE CONCENTRATION: 0.69 MG/ML, MOST RECENT DOSE: 04/JUL/2012
     Route: 042
     Dates: start: 20111021
  2. BENDAMUSTINE [Suspect]
     Indication: LYMPHOMA
     Dosage: MOST RECENT DOSE ON: 08/MAR/2012. LAST DOSE TAKEN: 165 MG
     Route: 042
     Dates: start: 20111021
  3. EMCORETIC MITIS [Concomitant]
     Indication: HYPERTENSION
     Route: 065
     Dates: start: 1992
  4. OLMETEC PLUS [Concomitant]
     Indication: HYPERTENSION
     Route: 065
     Dates: start: 1992
  5. ROCEPHIN [Concomitant]
     Indication: INFECTION
     Route: 065
     Dates: start: 20120819, end: 20120822
  6. AUGMENTIN [Concomitant]
     Indication: INFECTION
     Route: 065
     Dates: start: 20120823, end: 20120828
  7. ZOVIRAX [Concomitant]
     Indication: INFECTION
     Route: 065
     Dates: start: 20120904, end: 20121106
  8. BELSAR PLUS [Concomitant]
     Indication: HYPERTENSION
     Route: 065
     Dates: start: 20120819, end: 20120911
  9. BELSAR PLUS [Concomitant]
     Route: 065
     Dates: start: 20120916
  10. NATRIUM BICARBONATE [Concomitant]
     Indication: INFECTION
     Route: 065
     Dates: start: 20120821, end: 20120821
  11. OMEPRAZOLE [Concomitant]
     Indication: GASTRIC ULCER
     Route: 065
     Dates: start: 20120911, end: 20120915
  12. PANTOMED (BELGIUM) [Concomitant]
     Indication: GASTRIC ULCER
     Route: 065
     Dates: start: 20120816
  13. NEUPOGEN [Concomitant]
     Indication: NEUTROPENIA
     Route: 065
     Dates: start: 20121013, end: 20121128
  14. LITICAN [Concomitant]
     Indication: NAUSEA
     Route: 065
     Dates: start: 20121110, end: 20121113
  15. PARACETAMOL [Concomitant]
     Indication: PYREXIA
     Route: 065
     Dates: start: 20120820, end: 20120905
  16. AUGMENTIN [Concomitant]
     Indication: INFECTION
     Route: 065
     Dates: start: 20120823, end: 20120828

REACTIONS (2)
  - Vaginal ulceration [Recovered/Resolved]
  - Pain [Recovered/Resolved]
